FAERS Safety Report 8989072 (Version 1)
Quarter: 2012Q4

REPORT INFORMATION
  Report Type: Spontaneous
  Country: US (occurrence: None)
  Receive Date: 20121224
  Receipt Date: 20121224
  Transmission Date: 20130627
  Serious: No
  Sender: FDA-Public Use
  Company Number: None

PATIENT
  Age: 48 Year
  Sex: Female
  Weight: 58.97 kg

DRUGS (1)
  1. AVELOX [Suspect]
     Indication: STREPTOCOCCAL SORE THROAT
     Dosage: two daily
     Dates: start: 20120801, end: 20120801

REACTIONS (1)
  - Rash generalised [None]
